FAERS Safety Report 5672053-4 (Version None)
Quarter: 2008Q1

REPORT INFORMATION
  Report Type: 
  Country: None (occurrence: None)
  Receive Date: 20080317
  Receipt Date: 20080317
  Transmission Date: 20080703
  Serious: Yes (Hospitalization)
  Sender: FDA-Public Use
  Company Number: None

PATIENT
  Sex: Male
  Weight: 89 kg

DRUGS (4)
  1. FLUOROURACIL [Suspect]
     Dosage: 11340 MG
     Dates: end: 20080310
  2. BEVACIZUMAB (RHUMAB VEGF) [Suspect]
     Dosage: 881 MG
     Dates: end: 20080310
  3. LEUCOVORIN CALCIUM [Suspect]
     Dosage: 1620 MG
     Dates: end: 20080310
  4. ELOXATIN [Suspect]
     Dosage: 345 MG
     Dates: end: 20080310

REACTIONS (1)
  - ABDOMINAL PAIN [None]
